FAERS Safety Report 22241209 (Version 3)
Quarter: 2024Q2

REPORT INFORMATION
  Report Type: Report from Study
  Country: US (occurrence: US)
  Receive Date: 20230421
  Receipt Date: 20240507
  Transmission Date: 20240715
  Serious: Yes (Other)
  Sender: FDA-Public Use
  Company Number: US-002147023-NVSC2023US086525

PATIENT
  Sex: Female

DRUGS (1)
  1. ENTRESTO [Suspect]
     Active Substance: SACUBITRIL\VALSARTAN
     Indication: Paternal exposure during pregnancy
     Dosage: UNK (EXPOSURE VIA PARTNER)
     Route: 050

REACTIONS (2)
  - Premature delivery [Unknown]
  - Exposure via partner [Unknown]
